FAERS Safety Report 6588992-6 (Version None)
Quarter: 2010Q1

REPORT INFORMATION
  Report Type: 
  Country: None (occurrence: None)
  Receive Date: 20100218
  Receipt Date: 20100209
  Transmission Date: 20100710
  Serious: No
  Sender: FDA-Public Use
  Company Number: US-B.I. PHARMACEUTICALS,INC./RIDGEFIELD-2010-BP-01006BP

PATIENT
  Sex: Female

DRUGS (3)
  1. ZANTAC 150 [Suspect]
     Indication: DUODENITIS
     Dosage: 300 MG
     Route: 048
     Dates: start: 20050101, end: 20091015
  2. BENADRYL [Concomitant]
     Indication: MILK ALLERGY
  3. VALERIAN ROOT [Concomitant]
     Indication: INSOMNIA

REACTIONS (3)
  - AMPHETAMINES POSITIVE [None]
  - FALSE POSITIVE LABORATORY RESULT [None]
  - OPIATES POSITIVE [None]
